FAERS Safety Report 5698191-8 (Version None)
Quarter: 2008Q2

REPORT INFORMATION
  Report Type: 
  Country: None (occurrence: None)
  Receive Date: 20080403
  Receipt Date: 20080321
  Transmission Date: 20081010
  Serious: Yes (Life-Threatening, Disabling, Other)
  Sender: FDA-Public Use
  Company Number: 000344

PATIENT
  Age: 49 Year
  Sex: Male

DRUGS (4)
  1. BUSULFEX [Suspect]
     Indication: STEM CELL TRANSPLANT
     Dosage: INTRAVENOUS
     Route: 042
     Dates: start: 20070704, end: 20070705
  2. CYCLOSPORINE [Suspect]
  3. FLUDARABINE PHOSPHATE [Concomitant]
  4. VALPROATE SODIUM [Concomitant]

REACTIONS (6)
  - ALTERED STATE OF CONSCIOUSNESS [None]
  - BRAIN ABSCESS [None]
  - CEREBRAL HAEMORRHAGE [None]
  - ENCEPHALITIS HERPES [None]
  - RENAL DISORDER [None]
  - SEPTIC EMBOLUS [None]
